FAERS Safety Report 8604146-3 (Version None)
Quarter: 2012Q3

REPORT INFORMATION
  Report Type: 
  Country: None (occurrence: None)
  Receive Date: 20120806
  Receipt Date: 20120723
  Transmission Date: 20120928
  Serious: Yes (Other)
  Sender: FDA-Public Use
  Company Number: 2012MA009369

PATIENT
  Age: 89 Year
  Sex: Female

DRUGS (3)
  1. DIOGXIN [Concomitant]
  2. RANITIDINE [Concomitant]
  3. DOXYCYCLINE HYCLATE [Suspect]
     Indication: INFECTION
     Dosage: 100 MG;BID
     Dates: start: 20120606, end: 20120608

REACTIONS (4)
  - HYPERGLYCAEMIA [None]
  - SKIN ULCER [None]
  - LEG AMPUTATION [None]
  - DISEASE PROGRESSION [None]
